FAERS Safety Report 24783268 (Version 4)
Quarter: 2025Q1

REPORT INFORMATION
  Report Type: Spontaneous
  Country: JP (occurrence: JP)
  Receive Date: 20241227
  Receipt Date: 20250120
  Transmission Date: 20250409
  Serious: Yes (Life-Threatening, Hospitalization, Other)
  Sender: MERCK
  Company Number: JP-MSD-M2024-54809

PATIENT
  Age: 69 Year
  Sex: Female

DRUGS (6)
  1. KEYTRUDA [Suspect]
     Active Substance: PEMBROLIZUMAB
     Indication: Triple negative breast cancer
     Dosage: 200 MILLIGRAM, Q3W
     Route: 041
     Dates: start: 20241107, end: 20241223
  2. KEYTRUDA [Suspect]
     Active Substance: PEMBROLIZUMAB
     Indication: HER2 positive breast cancer
  3. CARBOPLATIN [Concomitant]
     Active Substance: CARBOPLATIN
     Indication: Triple negative breast cancer
     Route: 065
     Dates: start: 20241107
  4. CARBOPLATIN [Concomitant]
     Active Substance: CARBOPLATIN
     Indication: HER2 positive breast cancer
  5. PACLITAXEL [Concomitant]
     Active Substance: PACLITAXEL
     Indication: Triple negative breast cancer
     Route: 065
     Dates: start: 20241107
  6. PACLITAXEL [Concomitant]
     Active Substance: PACLITAXEL
     Indication: HER2 positive breast cancer

REACTIONS (22)
  - Depressed level of consciousness [Unknown]
  - Pulmonary artery thrombosis [Unknown]
  - Delirium [Unknown]
  - Base excess decreased [Unknown]
  - Thrombotic thrombocytopenic purpura [Unknown]
  - Cytokine release syndrome [Unknown]
  - Subdural haematoma [Unknown]
  - Pyrexia [Not Recovered/Not Resolved]
  - Renal impairment [Unknown]
  - Hepatic function abnormal [Unknown]
  - Autoimmune hepatitis [Unknown]
  - Hyperthyroidism [Unknown]
  - Haemophagocytic lymphohistiocytosis [Unknown]
  - Acute kidney injury [Unknown]
  - Pulmonary embolism [Unknown]
  - Immune-mediated hypothyroidism [Unknown]
  - Blood corticotrophin decreased [Unknown]
  - Hepatic steatosis [Unknown]
  - Inflammation [Unknown]
  - Hypopituitarism [Unknown]
  - Blood lactate dehydrogenase increased [Unknown]
  - Thyroiditis [Unknown]

NARRATIVE: CASE EVENT DATE: 20240101
